FAERS Safety Report 22064570 (Version 1)
Quarter: 2023Q1

REPORT INFORMATION
  Report Type: Spontaneous
  Country: GB (occurrence: GB)
  Receive Date: 20230306
  Receipt Date: 20230306
  Transmission Date: 20230418
  Serious: Yes (Other)
  Sender: FDA-Public Use
  Company Number: GB-MHRA-MED-202302231023161390-PKNMW

PATIENT
  Age: 54 Year
  Sex: Female

DRUGS (1)
  1. REPATHA [Suspect]
     Active Substance: EVOLOCUMAB
     Indication: Primary hypercholesterolaemia
     Dosage: 140 MILLIGRAM EVERY THREE WEEKS - EVERY FORTNIGHT
     Route: 065
     Dates: start: 20210126

REACTIONS (1)
  - Aggression [Unknown]
